FAERS Safety Report 5022354-8 (Version None)
Quarter: 2006Q2

REPORT INFORMATION
  Report Type: 
  Country: None (occurrence: None)
  Receive Date: 20060502
  Receipt Date: 20060125
  Transmission Date: 20061013
  Serious: Yes (Other)
  Sender: FDA-Public Use
  Company Number: PHEH2006US01354

PATIENT
  Age: 58 Year
  Sex: Female

DRUGS (1)
  1. LOTREL [Suspect]
     Indication: HYPERTENSION
     Dosage: 10/20 MG, QD, ORAL
     Route: 048
     Dates: start: 20050613, end: 20050623

REACTIONS (5)
  - ALOPECIA [None]
  - ANGIONEUROTIC OEDEMA [None]
  - DYSPNOEA [None]
  - SWELLING FACE [None]
  - TONGUE OEDEMA [None]
